FAERS Safety Report 11147785 (Version 1)
Quarter: 2015Q2

REPORT INFORMATION
  Report Type: Spontaneous
  Country: US (occurrence: None)
  Receive Date: 20150528
  Receipt Date: 20150528
  Transmission Date: 20150821
  Serious: No
  Sender: FDA-Public Use
  Company Number: None

PATIENT
  Age: 58 Year
  Sex: Male

DRUGS (1)
  1. PLEGRIDY [Suspect]
     Active Substance: PEGINTERFERON BETA-1A
     Indication: MULTIPLE SCLEROSIS
     Dosage: 125 MCG, Q2W
     Route: 058
     Dates: end: 20150522

REACTIONS (6)
  - Catatonia [None]
  - Hyporesponsive to stimuli [None]
  - Abasia [None]
  - Flushing [None]
  - Hearing impaired [None]
  - Aphasia [None]
